FAERS Safety Report 5043847-3 (Version None)
Quarter: 2006Q2

REPORT INFORMATION
  Report Type: 
  Country: None (occurrence: None)
  Receive Date: 20060629
  Receipt Date: 20031022
  Transmission Date: 20061013
  Serious: Yes (Hospitalization)
  Sender: FDA-Public Use
  Company Number: 226729

PATIENT
  Age: 63 Year
  Sex: Female
  Weight: 64 kg

DRUGS (8)
  1. MABTHERA                (RITUXIMAB) [Suspect]
     Indication: DRUG USE FOR UNKNOWN INDICATION
     Dosage: 675 MG, Q3W, INTRAVENOUS
     Route: 042
     Dates: start: 20030804
  2. INTERFERON ALFA 2A                 (INTERFERON ALFA-2A) [Suspect]
     Indication: DRUG USE FOR UNKNOWN INDICATION
     Dosage: Q3W,SUBCUTANEOUS
     Route: 058
  3. CIMETIDINE [Concomitant]
  4. PARACEMATOL                   (ACETAMINOPHEN) [Concomitant]
  5. ALLOPURINOL [Concomitant]
  6. LOPERAMIDE [Concomitant]
  7. OXAZEPAM [Concomitant]
  8. METOCLOPRAMIDE                (METOCLOPRAMIDE HYDROCHLORIDE) [Concomitant]

REACTIONS (11)
  - CANDIDIASIS [None]
  - DEHYDRATION [None]
  - DIARRHOEA [None]
  - ESCHERICHIA INFECTION [None]
  - GENERAL PHYSICAL HEALTH DETERIORATION [None]
  - HYPOKALAEMIA [None]
  - NAUSEA [None]
  - ORAL INTAKE REDUCED [None]
  - PRODUCTIVE COUGH [None]
  - RENAL PAIN [None]
  - SALMONELLOSIS [None]
